FAERS Safety Report 7218178-3 (Version None)
Quarter: 2011Q1

REPORT INFORMATION
  Report Type: 
  Country: None (occurrence: None)
  Receive Date: 20110110
  Receipt Date: 20070906
  Transmission Date: 20110831
  Serious: Yes (Hospitalization)
  Sender: FDA-Public Use
  Company Number: PHRM2007FR02135

PATIENT
  Age: 66 Year
  Sex: Female

DRUGS (6)
  1. METFORMIN [Concomitant]
  2. GLYBURIDE [Concomitant]
     Route: 048
  3. VALSARTAN  AND HYDROCHLOROTHIAZIDE [Suspect]
     Route: 048
  4. TERALITHE [Interacting]
     Indication: BIPOLAR I DISORDER
     Dosage: 250 MG + 125 MG + 250 MG/DAY
     Route: 048
  5. HALDOL [Concomitant]
  6. LEVOTHYROX [Concomitant]
     Route: 048

REACTIONS (25)
  - BLOOD PH DECREASED [None]
  - GENERAL PHYSICAL HEALTH DETERIORATION [None]
  - DRUG INTERACTION [None]
  - AGITATION [None]
  - OPPOSITIONAL DEFIANT DISORDER [None]
  - DECREASED APPETITE [None]
  - HEPATIC STEATOSIS [None]
  - METABOLIC ACIDOSIS [None]
  - PCO2 DECREASED [None]
  - BLOOD CREATININE INCREASED [None]
  - MICROALBUMINURIA [None]
  - PYELOCALIECTASIS [None]
  - BLOOD BICARBONATE DECREASED [None]
  - FALL [None]
  - DYSARTHRIA [None]
  - DIABETES MELLITUS INADEQUATE CONTROL [None]
  - DISORIENTATION [None]
  - TOXICITY TO VARIOUS AGENTS [None]
  - DIARRHOEA [None]
  - DEHYDRATION [None]
  - ESCHERICHIA URINARY TRACT INFECTION [None]
  - RENAL FAILURE [None]
  - CONFUSIONAL STATE [None]
  - BLOOD UREA INCREASED [None]
  - DRUG LEVEL INCREASED [None]
